FAERS Safety Report 12243400 (Version 2)
Quarter: 2017Q3

REPORT INFORMATION
  Report Type: Spontaneous
  Country: DE (occurrence: DE)
  Receive Date: 20160406
  Receipt Date: 20170801
  Transmission Date: 20171127
  Serious: Yes (Other)
  Sender: FDA-Public Use
  Company Number: DE-MERCK KGAA-1050298

PATIENT
  Age: 62 Year
  Sex: Female

DRUGS (4)
  1. NOVOTHYROX [Suspect]
     Active Substance: LEVOTHYROXINE SODIUM
     Route: 048
     Dates: start: 2009
  2. NOVOTHYROX [Suspect]
     Active Substance: LEVOTHYROXINE SODIUM
     Route: 048
  3. NOVOTHYROX [Suspect]
     Active Substance: LEVOTHYROXINE SODIUM
     Route: 048
     Dates: start: 2017
  4. NOVOTHYROX [Suspect]
     Active Substance: LEVOTHYROXINE SODIUM
     Indication: PRODUCT USED FOR UNKNOWN INDICATION
     Route: 048

REACTIONS (5)
  - Palpitations [Recovered/Resolved]
  - Drug dose omission [Unknown]
  - Arrhythmia [Recovered/Resolved]
  - Fatigue [Unknown]
  - Angina pectoris [Recovered/Resolved]

NARRATIVE: CASE EVENT DATE: 2015
